FAERS Safety Report 16011247 (Version 2)
Quarter: 2019Q2

REPORT INFORMATION
  Report Type: Report from Study
  Country: US (occurrence: US)
  Receive Date: 20190227
  Receipt Date: 20190528
  Transmission Date: 20190711
  Serious: Yes (Other)
  Sender: FDA-Public Use
  Company Number: US-AMGEN-USASP2019028199

PATIENT
  Age: 59 Year
  Sex: Female

DRUGS (3)
  1. PERCOCET [Suspect]
     Active Substance: ACETAMINOPHEN\OXYCODONE HYDROCHLORIDE
     Indication: MYALGIA
     Dosage: 5/325MG, AS NECESSARY
     Route: 065
     Dates: start: 2019
  2. ENBREL [Suspect]
     Active Substance: ETANERCEPT
     Indication: RHEUMATOID ARTHRITIS
     Dosage: 50 MILLIGRAM, QWK
     Route: 065
  3. PROLIA [Suspect]
     Active Substance: DENOSUMAB
     Indication: OSTEOPOROSIS
     Dosage: 60 MG, Q6MO
     Route: 065
     Dates: start: 2018

REACTIONS (11)
  - Paralysis [Recovered/Resolved]
  - Flatulence [Unknown]
  - Migraine [Unknown]
  - Loss of consciousness [Unknown]
  - Urinary tract infection [Recovered/Resolved]
  - Arthralgia [Recovered/Resolved]
  - Oral infection [Unknown]
  - Poor quality sleep [Unknown]
  - Dizziness [Unknown]
  - Rash [Unknown]
  - Myalgia [Unknown]

NARRATIVE: CASE EVENT DATE: 2019
